FAERS Safety Report 4403793-2 (Version None)
Quarter: 2004Q3

REPORT INFORMATION
  Report Type: 
  Country: None (occurrence: None)
  Receive Date: 20040719
  Receipt Date: 20040711
  Transmission Date: 20050211
  Serious: Yes (Death, Life-Threatening)
  Sender: FDA-Public Use
  Company Number: ENDC20040016

PATIENT
  Age: 38 Year
  Sex: Male
  Weight: 146.5118 kg

DRUGS (2)
  1. ENDOCET    ENDO [Suspect]
     Dates: end: 20020301
  2. METHADONE HCL [Suspect]

REACTIONS (26)
  - APNOEA [None]
  - ARRHYTHMIA [None]
  - BACTERIAL INFECTION [None]
  - BRONCHIAL OEDEMA [None]
  - COMA [None]
  - CORONARY ARTERY ATHEROSCLEROSIS [None]
  - CORONARY ARTERY STENOSIS [None]
  - DILATATION VENTRICULAR [None]
  - DRUG SCREEN POSITIVE [None]
  - HEPATIC STEATOSIS [None]
  - HYPERPLASIA [None]
  - INFLAMMATION [None]
  - LYMPHOCYTIC INFILTRATION [None]
  - MICROANGIOPATHY [None]
  - MUSCLE RIGIDITY [None]
  - PANCREATIC DISORDER [None]
  - PULMONARY CONGESTION [None]
  - PULMONARY FUNCTION TEST ABNORMAL [None]
  - PULMONARY OEDEMA [None]
  - SINUS CONGESTION [None]
  - SKIN STRIAE [None]
  - SPLEEN CONGESTION [None]
  - SPLEEN DISORDER [None]
  - STAPHYLOCOCCAL INFECTION [None]
  - TRACHEAL OEDEMA [None]
  - VENTRICULAR HYPERTROPHY [None]
